FAERS Safety Report 6803299-7 (Version None)
Quarter: 2010Q2

REPORT INFORMATION
  Report Type: 
  Country: None (occurrence: None)
  Receive Date: 20100628
  Receipt Date: 20100616
  Transmission Date: 20101027
  Serious: Yes (Other)
  Sender: FDA-Public Use
  Company Number: US-PFIZER INC-2008004213

PATIENT
  Sex: Female
  Weight: 122 kg

DRUGS (12)
  1. TIKOSYN [Suspect]
     Indication: ATRIAL FIBRILLATION
     Dosage: 0.5 MG, 2X/DAY
     Route: 048
     Dates: start: 20070101
  2. CARDIZEM [Suspect]
     Indication: ATRIAL FIBRILLATION
  3. CARDIZEM [Suspect]
     Dosage: 60 MG, 3X/DAY
     Dates: start: 20070101
  4. GLIMEPIRIDE [Concomitant]
     Dosage: 4 MG, 1X/DAY
  5. NADOLOL [Concomitant]
     Dosage: 20 MG, 1X/DAY
  6. LISINOPRIL [Concomitant]
     Dosage: 10 MG, 1X/DAY
  7. ZETIA [Concomitant]
     Dosage: 10 MG, 1X/DAY
  8. ACETYLSALICYLIC ACID [Concomitant]
     Dosage: 81 MG, 1X/DAY
  9. LOVAZA [Concomitant]
     Dosage: 1000 MG, 1X/DAY
  10. COUMADIN [Concomitant]
     Dosage: UNK
  11. METFORMIN HYDROCHLORIDE/SITAGLIPTIN [Concomitant]
     Dosage: 50/1000 MG, DAILY
  12. FUROSEMIDE [Concomitant]
     Dosage: 40 MG, 1X/DAY

REACTIONS (13)
  - ASTHENIA [None]
  - ATRIAL FIBRILLATION [None]
  - BLOOD GLUCOSE INCREASED [None]
  - CARDIOMEGALY [None]
  - CORONARY ARTERY DISEASE [None]
  - DIZZINESS [None]
  - DYSPHONIA [None]
  - EAR DISORDER [None]
  - FATIGUE [None]
  - MUSCULOSKELETAL DISCOMFORT [None]
  - SOMNOLENCE [None]
  - URINARY TRACT DISORDER [None]
  - WEIGHT INCREASED [None]
